FAERS Safety Report 6422357-2 (Version None)
Quarter: 2009Q4

REPORT INFORMATION
  Report Type: 
  Country: None (occurrence: None)
  Receive Date: 20091030
  Receipt Date: 20091015
  Transmission Date: 20100525
  Serious: Yes (Other)
  Sender: FDA-Public Use
  Company Number: BR-PFIZER INC-2009213322

PATIENT
  Sex: Female

DRUGS (2)
  1. LIPITOR [Suspect]
     Indication: BLOOD CHOLESTEROL INCREASED
     Dosage: 20 MG, 1X/DAY
     Route: 048
     Dates: start: 20090510, end: 20090501
  2. SIMVASTATIN [Suspect]
     Dosage: 20 MG, UNK

REACTIONS (7)
  - ABDOMINAL PAIN UPPER [None]
  - BLOOD PRESSURE ABNORMAL [None]
  - ERYTHEMA [None]
  - GALLBLADDER OPERATION [None]
  - LIVER DISORDER [None]
  - PANCREATITIS [None]
  - SWELLING [None]
